FAERS Safety Report 15926352 (Version 5)
Quarter: 2020Q1

REPORT INFORMATION
  Report Type: Spontaneous
  Country: US (occurrence: US)
  Receive Date: 20190206
  Receipt Date: 20200131
  Transmission Date: 20200409
  Serious: Yes (Death, Other)
  Sender: FDA-Public Use
  Company Number: US-ASTRAZENECA-2018SF21172

PATIENT
  Sex: Male

DRUGS (46)
  1. PRILOSEC OTC [Suspect]
     Active Substance: OMEPRAZOLE MAGNESIUM
     Indication: GASTROOESOPHAGEAL REFLUX DISEASE
     Route: 048
     Dates: start: 20121123
  2. ONDANSETRON [Concomitant]
     Active Substance: ONDANSETRON
  3. BENADRYL [Concomitant]
     Active Substance: DIPHENHYDRAMINE HYDROCHLORIDE
  4. PANTOPRAZOLE [Concomitant]
     Active Substance: PANTOPRAZOLE
  5. ALBUMIN [Concomitant]
     Active Substance: ALBUMIN HUMAN
  6. PRENATAL [Concomitant]
     Active Substance: VITAMINS
     Route: 048
  7. NEXIUM 24HR [Suspect]
     Active Substance: ESOMEPRAZOLE MAGNESIUM
     Route: 048
  8. ARANESP [Concomitant]
     Active Substance: DARBEPOETIN ALFA
  9. RENAGEL [Concomitant]
     Active Substance: SEVELAMER HYDROCHLORIDE
     Route: 048
  10. XALATAN [Concomitant]
     Active Substance: LATANOPROST
  11. FAMOTIDINE. [Concomitant]
     Active Substance: FAMOTIDINE
  12. VANCOMYCIN [Concomitant]
     Active Substance: VANCOMYCIN
  13. FAMOTIDINE. [Concomitant]
     Active Substance: FAMOTIDINE
  14. AMBIEN [Concomitant]
     Active Substance: ZOLPIDEM TARTRATE
  15. ACETAMINOPHEN. [Concomitant]
     Active Substance: ACETAMINOPHEN
  16. DOCUSATE SODIUM. [Concomitant]
     Active Substance: DOCUSATE SODIUM
  17. NALOXONE [Concomitant]
     Active Substance: NALOXONE
  18. LANTUS [Concomitant]
     Active Substance: INSULIN GLARGINE
  19. PRILOSEC OTC [Suspect]
     Active Substance: OMEPRAZOLE MAGNESIUM
     Indication: GASTROOESOPHAGEAL REFLUX DISEASE
     Route: 048
     Dates: start: 20030601, end: 20111201
  20. FOLIC ACID. [Concomitant]
     Active Substance: FOLIC ACID
  21. VITAMIN B12 [Concomitant]
     Active Substance: CYANOCOBALAMIN
  22. PERCOCET [Concomitant]
     Active Substance: ACETAMINOPHEN\OXYCODONE HYDROCHLORIDE
  23. PREDNISOLONE. [Concomitant]
     Active Substance: PREDNISOLONE
  24. MORPHINE [Concomitant]
     Active Substance: MORPHINE
  25. GENTAMYCIN [Concomitant]
     Active Substance: GENTAMICIN
  26. HYDROMORPHONE [Concomitant]
     Active Substance: HYDROMORPHONE
  27. HEPARIN [Concomitant]
     Active Substance: HEPARIN SODIUM
  28. ZOSYN [Concomitant]
     Active Substance: PIPERACILLIN SODIUM\TAZOBACTAM SODIUM
  29. NOREPINEPHRINE. [Concomitant]
     Active Substance: NOREPINEPHRINE
  30. GABAPENTIN. [Concomitant]
     Active Substance: GABAPENTIN
  31. COREG [Concomitant]
     Active Substance: CARVEDILOL
     Route: 048
  32. CLOPIDOGREL [Concomitant]
     Active Substance: CLOPIDOGREL BISULFATE
  33. NEXIUM [Suspect]
     Active Substance: ESOMEPRAZOLE MAGNESIUM
     Indication: GASTROOESOPHAGEAL REFLUX DISEASE
     Route: 048
     Dates: start: 20030101, end: 20111201
  34. PRILOSEC OTC [Suspect]
     Active Substance: OMEPRAZOLE MAGNESIUM
     Indication: GASTROOESOPHAGEAL REFLUX DISEASE
     Route: 048
     Dates: start: 20121129
  35. FLUTICASONE. [Concomitant]
     Active Substance: FLUTICASONE
  36. SIMVASTATIN. [Concomitant]
     Active Substance: SIMVASTATIN
  37. DARBEPOETIN ALFA [Concomitant]
     Active Substance: DARBEPOETIN ALFA
  38. DILAUDID [Concomitant]
     Active Substance: HYDROMORPHONE HYDROCHLORIDE
  39. STREPTOMYCIN [Concomitant]
     Active Substance: STREPTOMYCIN SULFATE
  40. ATROPINE. [Concomitant]
     Active Substance: ATROPINE
  41. MULTIVITAMIN [Concomitant]
     Active Substance: VITAMINS
  42. ASPIRIN. [Concomitant]
     Active Substance: ASPIRIN
  43. PREDNISOLONE ACETATE. [Concomitant]
     Active Substance: PREDNISOLONE ACETATE
  44. MIDODRINE [Concomitant]
     Active Substance: MIDODRINE
  45. IMDUR [Concomitant]
     Active Substance: ISOSORBIDE MONONITRATE
  46. FLUMAZENIL. [Concomitant]
     Active Substance: FLUMAZENIL

REACTIONS (9)
  - Fluid overload [Fatal]
  - Renal failure [Unknown]
  - Nephrogenic anaemia [Unknown]
  - End stage renal disease [Fatal]
  - Acute respiratory failure [Fatal]
  - Chronic kidney disease [Unknown]
  - Renal injury [Unknown]
  - Chronic kidney disease-mineral and bone disorder [Unknown]
  - Acute kidney injury [Unknown]
